FAERS Safety Report 8898756 (Version 1)
Quarter: 2012Q4

REPORT INFORMATION
  Report Type: 
  Country: US (occurrence: US)
  Receive Date: 20121108
  Receipt Date: 20121108
  Transmission Date: 20130627
  Serious: No
  Sender: FDA-Public Use
  Company Number: US-AMGEN-USASP2012030624

PATIENT
  Age: 46 Year
  Sex: Male
  Weight: 90.7 kg

DRUGS (9)
  1. ENBREL [Suspect]
     Indication: RHEUMATOID ARTHRITIS
     Dosage: 50 mg, qwk
     Route: 058
     Dates: start: 20120329
  2. MELOXICAM [Concomitant]
     Dosage: 15 mg, UNK
  3. LISINOPRIL [Concomitant]
     Dosage: 10 mg, UNK
  4. FOLIC ACID [Concomitant]
     Dosage: UNK
  5. METHOTREXATE [Concomitant]
     Dosage: 7 mg, qwk
     Dates: start: 201109
  6. SIMVASTATIN [Concomitant]
     Dosage: 10 mg, UNK
  7. FISH OIL [Concomitant]
     Dosage: UNK
  8. MULTI TABS [Concomitant]
     Dosage: UNK
  9. CALCIUM [Concomitant]
     Dosage: 500 UNK, UNK

REACTIONS (2)
  - Rheumatoid arthritis [Not Recovered/Not Resolved]
  - Bronchitis [Recovered/Resolved]
